FAERS Safety Report 6288409-5 (Version None)
Quarter: 2009Q3

REPORT INFORMATION
  Report Type: 
  Country: None (occurrence: None)
  Receive Date: 20090729
  Receipt Date: 20090721
  Transmission Date: 20100115
  Serious: Yes (Hospitalization)
  Sender: FDA-Public Use
  Company Number: A0788277A

PATIENT
  Age: 54 Year
  Sex: Male
  Weight: 175.9 kg

DRUGS (1)
  1. AVANDIA [Suspect]
     Indication: DRUG USE FOR UNKNOWN INDICATION
     Dosage: 8MG PER DAY
     Route: 048
     Dates: start: 20041101, end: 20070901

REACTIONS (4)
  - BACK PAIN [None]
  - DIABETES MELLITUS [None]
  - MYOCARDIAL INFARCTION [None]
  - WEIGHT INCREASED [None]
